FAERS Safety Report 8166001-5 (Version None)
Quarter: 2012Q1

REPORT INFORMATION
  Report Type: 
  Country: None (occurrence: None)
  Receive Date: 20120227
  Receipt Date: 20110324
  Transmission Date: 20120608
  Serious: No
  Sender: FDA-Public Use
  Company Number: US-MYLANLABS-2011S1002145

PATIENT
  Age: 12 Year
  Sex: Female
  Weight: 52.16 kg

DRUGS (4)
  1. ORAL CONTRACEPTIVE NOS [Concomitant]
     Indication: CONTRACEPTION
  2. AMNESTEEM [Suspect]
     Route: 048
     Dates: start: 20100930, end: 20110128
  3. AMNESTEEM [Suspect]
     Route: 048
     Dates: end: 20110128
  4. AMNESTEEM [Suspect]
     Indication: ACNE CYSTIC
     Route: 048
     Dates: start: 20100930, end: 20110128

REACTIONS (1)
  - DEPRESSION [None]
